FAERS Safety Report 18001471 (Version 3)
Quarter: 2020Q4

REPORT INFORMATION
  Report Type: Other
  Country: CO (occurrence: CO)
  Receive Date: 20200709
  Receipt Date: 20201209
  Transmission Date: 20210113
  Serious: Yes (Other)
  Sender: FDA-Public Use
  Company Number: CO-ROCHE-2638553

PATIENT
  Sex: Male
  Weight: 82 kg

DRUGS (1)
  1. OCREVUS [Suspect]
     Active Substance: OCRELIZUMAB
     Indication: PRIMARY PROGRESSIVE MULTIPLE SCLEROSIS
     Route: 042
     Dates: start: 20200203

REACTIONS (2)
  - Latent tuberculosis [Not Recovered/Not Resolved]
  - Hepatitis B antibody abnormal [Recovered/Resolved]
